FAERS Safety Report 12714477 (Version 1)
Quarter: 2016Q3

REPORT INFORMATION
  Report Type: Spontaneous
  Country: US (occurrence: US)
  Receive Date: 20160905
  Receipt Date: 20160905
  Transmission Date: 20161109
  Serious: No
  Sender: FDA-Public Use
  Company Number: US-JAZZ-2016-US-008921

PATIENT
  Sex: Female

DRUGS (22)
  1. NUVIGIL [Concomitant]
     Active Substance: ARMODAFINIL
  2. NYSTATIN. [Concomitant]
     Active Substance: NYSTATIN
  3. ADVAIR HFA [Concomitant]
     Active Substance: FLUTICASONE PROPIONATE\SALMETEROL XINAFOATE
  4. MECLIZINE [Concomitant]
     Active Substance: MECLIZINE HYDROCHLORIDE
  5. MODAFINIL. [Concomitant]
     Active Substance: MODAFINIL
  6. NATURE-THROID [Concomitant]
     Active Substance: THYROID, PORCINE
  7. OMEPRAZOLE DR [Concomitant]
     Active Substance: OMEPRAZOLE
  8. MIRALAX [Concomitant]
     Active Substance: POLYETHYLENE GLYCOL 3350
  9. XYREM [Suspect]
     Active Substance: SODIUM OXYBATE
     Dosage: 4.5 G, BID
     Route: 048
     Dates: start: 201409
  10. FLOVENT [Concomitant]
     Active Substance: FLUTICASONE PROPIONATE
  11. FLUCONAZOLE. [Concomitant]
     Active Substance: FLUCONAZOLE
  12. IRON [Concomitant]
     Active Substance: IRON
  13. LEVOTHYROXINE. [Concomitant]
     Active Substance: LEVOTHYROXINE
  14. FLONASE ALLERGY RLF [Concomitant]
  15. METRONIDAZOLE BENZOATE [Concomitant]
     Active Substance: METRONIDAZOLE BENZOATE
  16. AMOXICILLIN. [Concomitant]
     Active Substance: AMOXICILLIN
  17. FLUDROCORTISONE [Concomitant]
     Active Substance: FLUDROCORTISONE
  18. XYREM [Suspect]
     Active Substance: SODIUM OXYBATE
     Indication: NARCOLEPSY
     Dosage: 2.25 G, BID
     Route: 048
     Dates: start: 201407, end: 201408
  19. XYREM [Suspect]
     Active Substance: SODIUM OXYBATE
     Indication: CATAPLEXY
     Dosage: DOSE ADJUSTMENTS
     Route: 048
     Dates: start: 2014, end: 2014
  20. VENTOLIN HFA [Concomitant]
     Active Substance: ALBUTEROL SULFATE
  21. ZOFRAN [Concomitant]
     Active Substance: ONDANSETRON HYDROCHLORIDE
  22. CALCIUM +D [Concomitant]
     Active Substance: CALCIUM\VITAMIN D

REACTIONS (3)
  - Cardiac murmur [Unknown]
  - Asthma exercise induced [Not Recovered/Not Resolved]
  - Condition aggravated [Not Recovered/Not Resolved]
